FAERS Safety Report 16404726 (Version 1)
Quarter: 2019Q2

REPORT INFORMATION
  Report Type: Spontaneous
  Country: US (occurrence: US)
  Receive Date: 20190502
  Receipt Date: 20190502
  Transmission Date: 20190711
  Serious: Yes (Hospitalization)
  Sender: FDA-Public Use
  Company Number: None

PATIENT
  Age: 28 Year
  Sex: Male
  Weight: 74.8 kg

DRUGS (6)
  1. LURASIDONE [Suspect]
     Active Substance: LURASIDONE
     Indication: PARANOIA
     Dates: start: 20190328, end: 20190408
  2. LURASIDONE [Suspect]
     Active Substance: LURASIDONE
     Indication: MANIA
     Dates: start: 20190408, end: 20190412
  3. LURASIDONE [Suspect]
     Active Substance: LURASIDONE
     Indication: PARANOIA
     Dates: start: 20190408, end: 20190412
  4. LURASIDONE [Suspect]
     Active Substance: LURASIDONE
     Indication: BIPOLAR DISORDER
     Dates: start: 20190408, end: 20190412
  5. LURASIDONE [Suspect]
     Active Substance: LURASIDONE
     Indication: SCHIZOPHRENIA
     Dates: start: 20190408, end: 20190412
  6. LURASIDONE [Suspect]
     Active Substance: LURASIDONE
     Route: 048
     Dates: start: 20190328, end: 20190408

REACTIONS (3)
  - Agitation [None]
  - Akathisia [None]
  - Hallucination, auditory [None]

NARRATIVE: CASE EVENT DATE: 20190412
